FAERS Safety Report 8937178 (Version 1)
Quarter: 2012Q4

REPORT INFORMATION
  Report Type: Spontaneous
  Country: TR (occurrence: None)
  Receive Date: 20121121
  Receipt Date: 20121121
  Transmission Date: 20130627
  Serious: Yes (Other)
  Sender: FDA-Public Use
  Company Number: 2012P1064976

PATIENT
  Age: 15 Year
  Sex: Female
  Weight: 30 kg

DRUGS (4)
  1. CEFTAZIDIME [Suspect]
     Indication: PERITONITIS
     Route: 042
  2. CEFTAZIDIME [Suspect]
     Indication: PERITONITIS
     Route: 033
  3. VANCOMYCIN [Concomitant]
  4. UNSPECIFIED	UNKNOWN ANTIHYPERTENSIVE TREATMENT [Concomitant]

REACTIONS (11)
  - Headache [None]
  - Somnolence [None]
  - Hyporeflexia [None]
  - Ataxia [None]
  - Coma scale normal [None]
  - Myoclonus [None]
  - Extensor plantar response [None]
  - Blood urea increased [None]
  - Blood creatinine increased [None]
  - Neurotoxicity [None]
  - Status epilepticus [None]
